FAERS Safety Report 24574575 (Version 1)
Quarter: 2024Q4

REPORT INFORMATION
  Report Type: Spontaneous
  Country: PL (occurrence: PL)
  Receive Date: 20241104
  Receipt Date: 20241104
  Transmission Date: 20250114
  Serious: Yes (Death, Other)
  Sender: AMGEN
  Company Number: PL-AMGEN-POLSP2024215362

PATIENT

DRUGS (1)
  1. BLINCYTO [Suspect]
     Active Substance: BLINATUMOMAB
     Indication: Acute lymphocytic leukaemia recurrent
     Dosage: UNK
     Route: 065

REACTIONS (4)
  - Acute lymphocytic leukaemia recurrent [Fatal]
  - Thrombotic microangiopathy [Fatal]
  - Infection [Fatal]
  - Graft versus host disease [Unknown]
